FAERS Safety Report 14997473 (Version 1)
Quarter: 2018Q2

REPORT INFORMATION
  Report Type: Spontaneous
  Country: DE (occurrence: DE)
  Receive Date: 20180611
  Receipt Date: 20180611
  Transmission Date: 20180711
  Serious: Yes (Hospitalization)
  Sender: FDA-Public Use
  Company Number: DE-TEVA-2018-DE-905077

PATIENT
  Age: 55 Year
  Sex: Male

DRUGS (3)
  1. PROPAFENON [Suspect]
     Active Substance: PROPAFENONE
     Dosage: 150 MG, YESTERDAY2, TODAY 2
     Route: 065
  2. FOSTER 100/6MIKROGRAMM [Concomitant]
     Dosage: NK MICROG, NEED
     Route: 065
  3. METOPROLOL. [Concomitant]
     Active Substance: METOPROLOL
     Dosage: 47.5 MG, 0.5-0-0.5-0
     Route: 065

REACTIONS (4)
  - Hyperhidrosis [Unknown]
  - Electrocardiogram abnormal [Unknown]
  - Dyspnoea [Unknown]
  - Arrhythmia [Unknown]
